FAERS Safety Report 15270290 (Version 4)
Quarter: 2019Q2

REPORT INFORMATION
  Report Type: Spontaneous
  Country: US (occurrence: US)
  Receive Date: 20180813
  Receipt Date: 20190614
  Transmission Date: 20190711
  Serious: Yes (Other)
  Sender: FDA-Public Use
  Company Number: US-PFIZER INC-2018323845

PATIENT
  Age: 56 Year
  Sex: Female

DRUGS (4)
  1. VALTREX [Concomitant]
     Active Substance: VALACYCLOVIR HYDROCHLORIDE
     Dosage: 500 MG, UNK
  2. XELJANZ XR [Suspect]
     Active Substance: TOFACITINIB CITRATE
     Dosage: 11 MG, UNK (ENTER 30 FOR 30 DO NOT BREAK)
     Dates: start: 20161219
  3. XELJANZ XR [Suspect]
     Active Substance: TOFACITINIB CITRATE
     Indication: RHEUMATOID ARTHRITIS
     Dosage: 11 MG, DAILY
     Route: 048
  4. XELJANZ XR [Suspect]
     Active Substance: TOFACITINIB CITRATE
     Dosage: 11 MG, UNK(ENTER 30 FOR 30 - DO NOT BREAK)
     Route: 048
     Dates: start: 20170306

REACTIONS (2)
  - Nasopharyngitis [Unknown]
  - Cellulitis [Unknown]

NARRATIVE: CASE EVENT DATE: 201901
